FAERS Safety Report 5867468-5 (Version None)
Quarter: 2008Q3

REPORT INFORMATION
  Report Type: 
  Country: None (occurrence: None)
  Receive Date: 20080818
  Receipt Date: 20080430
  Transmission Date: 20090109
  Serious: Yes (Hospitalization)
  Sender: FDA-Public Use
  Company Number: 20085107

PATIENT
  Age: 67 Year
  Sex: Female

DRUGS (1)
  1. LIORESAL [Suspect]
     Indication: MUSCLE SPASTICITY
     Dosage: SIMPLE CONTINUOUS 350 MCG/DAILY
     Dates: start: 20080101, end: 20080401

REACTIONS (2)
  - DRUG INEFFECTIVE [None]
  - HYPERTONIA [None]
